FAERS Safety Report 25983868 (Version 1)
Quarter: 2025Q4

REPORT INFORMATION
  Report Type: Spontaneous
  Country: US (occurrence: None)
  Receive Date: 20251031
  Receipt Date: 20251031
  Transmission Date: 20260117
  Serious: Yes (Death)
  Sender: FDA-CTU
  Company Number: None

PATIENT
  Age: 65 Year
  Sex: Male
  Weight: 75 kg

DRUGS (2)
  1. TAXOL [Suspect]
     Active Substance: PACLITAXEL
  2. RAMUCIRUMAB [Suspect]
     Active Substance: RAMUCIRUMAB
     Dates: end: 20250902

REACTIONS (1)
  - Seizure [None]

NARRATIVE: CASE EVENT DATE: 20250930
